FAERS Safety Report 18207548 (Version 2)
Quarter: 2022Q1

REPORT INFORMATION
  Report Type: Spontaneous
  Country: PT (occurrence: PT)
  Receive Date: 20200828
  Receipt Date: 20220317
  Transmission Date: 20220423
  Serious: Yes (Hospitalization)
  Sender: FDA-Public Use
  Company Number: None

PATIENT
  Age: 46 Year
  Sex: Female

DRUGS (6)
  1. CEFAZOLIN [Suspect]
     Active Substance: CEFAZOLIN
     Indication: Rhinoplasty
     Dosage: UNKNOWN
     Route: 065
     Dates: start: 201811, end: 201811
  2. METHYLPREDNISOLONE [Suspect]
     Active Substance: METHYLPREDNISOLONE
     Indication: Rhinoplasty
     Dosage: UNKNOWN
     Route: 065
     Dates: start: 201811, end: 201811
  3. ROCURONIUM BROMIDE [Suspect]
     Active Substance: ROCURONIUM BROMIDE
     Indication: Rhinoplasty
     Dosage: UNKNOWN
     Route: 065
     Dates: start: 201811, end: 201811
  4. PROPOFOL [Suspect]
     Active Substance: PROPOFOL
     Indication: Rhinoplasty
     Dosage: UNKNOWN
     Route: 065
     Dates: start: 201811, end: 201811
  5. REMIFENTANIL [Suspect]
     Active Substance: REMIFENTANIL
     Indication: Rhinoplasty
     Dosage: UNKNOWN
     Route: 065
     Dates: start: 201811, end: 201811
  6. DEXAMETHASONE [Suspect]
     Active Substance: DEXAMETHASONE
     Indication: Rhinoplasty
     Dosage: UNKNOWN
     Route: 065
     Dates: start: 201811, end: 201811

REACTIONS (4)
  - Urinary retention [Recovered/Resolved]
  - Generalised oedema [Recovered/Resolved]
  - Intestinal obstruction [Recovered/Resolved]
  - Hypertensive crisis [Recovered/Resolved]

NARRATIVE: CASE EVENT DATE: 20181101
